FAERS Safety Report 11050518 (Version 1)
Quarter: 2015Q2

REPORT INFORMATION
  Report Type: Spontaneous
  Country: US (occurrence: None)
  Receive Date: 20150420
  Receipt Date: 20150420
  Transmission Date: 20150821
  Serious: Yes (Other)
  Sender: FDA-Public Use
  Company Number: None

PATIENT
  Age: 47 Year
  Sex: Female
  Weight: 79.38 kg

DRUGS (7)
  1. DESPIRAMINE (FORMULATION UNKNOW) (DESIPRAMINE [Concomitant]
     Active Substance: DESIPRAMINE
  2. PROPANOLOL [Concomitant]
     Active Substance: PROPRANOLOL HYDROCHLORIDE
  3. FISH OIL [Concomitant]
     Active Substance: FISH OIL
  4. MULTI VITAMINE [Concomitant]
  5. HARVONI [Suspect]
     Active Substance: LEDIPASVIR\SOFOSBUVIR
     Indication: HEPATITIS C
  6. ZOLPIDEM [Concomitant]
     Active Substance: ZOLPIDEM\ZOLPIDEM TARTRATE
  7. MELOTONIN [Concomitant]

REACTIONS (8)
  - Arthralgia [None]
  - Anxiety [None]
  - Hunger [None]
  - Insomnia [None]
  - Thinking abnormal [None]
  - Depressed level of consciousness [None]
  - Dizziness [None]
  - Blood pressure increased [None]

NARRATIVE: CASE EVENT DATE: 20150410
